FAERS Safety Report 5695490-0 (Version None)
Quarter: 2008Q2

REPORT INFORMATION
  Report Type: 
  Country: None (occurrence: None)
  Receive Date: 20080407
  Receipt Date: 20080327
  Transmission Date: 20081010
  Serious: Yes (Life-Threatening, Hospitalization, Other)
  Sender: FDA-Public Use
  Company Number: GB-RANBAXY-2007RR-09715

PATIENT

DRUGS (1)
  1. VERAPAMIL TABLETS BP 120MG [Suspect]
     Dosage: 2000 MG, UNK
     Route: 048

REACTIONS (10)
  - ATRIOVENTRICULAR BLOCK FIRST DEGREE [None]
  - BLOOD GLUCOSE INCREASED [None]
  - BRADYCARDIA [None]
  - CARDIAC PACEMAKER INSERTION [None]
  - CARDIOTOXICITY [None]
  - DRUG TOXICITY [None]
  - HEART RATE DECREASED [None]
  - HYPOTENSION [None]
  - INTENTIONAL OVERDOSE [None]
  - OVERDOSE [None]
